FAERS Safety Report 20901697 (Version 1)
Quarter: 2022Q2

REPORT INFORMATION
  Report Type: Spontaneous
  Country: DE (occurrence: DE)
  Receive Date: 20220601
  Receipt Date: 20220601
  Transmission Date: 20220721
  Serious: Yes (Other)
  Sender: FDA-Public Use
  Company Number: DE-GLENMARK GENERICS (EUROPE) LTD-2016GMK021903

PATIENT
  Sex: Male
  Weight: 87 kg

DRUGS (7)
  1. OLANZAPINE [Suspect]
     Active Substance: OLANZAPINE
     Indication: Sleep disorder
     Dosage: 10 MG, DAILY  (EVENING)
     Route: 048
  2. ATORVASTATIN [Concomitant]
     Active Substance: ATORVASTATIN
     Indication: Hyperlipidaemia
     Dosage: UNK
     Route: 065
  3. NYSTATIN [Concomitant]
     Active Substance: NYSTATIN
     Indication: Oral infection
     Dosage: UNK
     Route: 065
  4. FLUCONAZOLE [Concomitant]
     Active Substance: FLUCONAZOLE
     Indication: Oral infection
     Dosage: UNK
     Route: 065
  5. QUETIAPINE [Concomitant]
     Active Substance: QUETIAPINE
     Indication: Product used for unknown indication
     Dosage: 1 DOSAGE FORM, DAILY
     Route: 065
     Dates: start: 201305
  6. PIPAMPERONE HYDROCHLORIDE [Concomitant]
     Active Substance: PIPAMPERONE HYDROCHLORIDE
     Indication: Sleep disorder
     Dosage: 30 MG, UNKNOWN
     Route: 065
  7. PIPAMPERONE HYDROCHLORIDE [Concomitant]
     Active Substance: PIPAMPERONE HYDROCHLORIDE
     Dosage: 20 MG, UNKNOWN
     Route: 065

REACTIONS (14)
  - Enterobacter infection [Unknown]
  - Pantoea agglomerans infection [Unknown]
  - Pseudomonas infection [Unknown]
  - Klebsiella infection [Unknown]
  - Haemophilus infection [Unknown]
  - Hypersensitivity [Not Recovered/Not Resolved]
  - Chest pain [Unknown]
  - Dyspnoea [Unknown]
  - Laryngospasm [Unknown]
  - Muscle spasms [Unknown]
  - Candida infection [Unknown]
  - Cardiac disorder [Unknown]
  - Epstein-Barr virus infection [Unknown]
  - Off label use [Unknown]
